FAERS Safety Report 25728305 (Version 1)
Quarter: 2025Q3

REPORT INFORMATION
  Report Type: Spontaneous
  Country: CN (occurrence: CN)
  Receive Date: 20250826
  Receipt Date: 20250826
  Transmission Date: 20251021
  Serious: Yes (Hospitalization)
  Sender: BAYER HEALTHCARE PHARMACEUTICALS INC.
  Company Number: CN-BAYER-2025A112851

PATIENT
  Age: 65 Year
  Sex: Male
  Weight: 79 kg

DRUGS (4)
  1. STIVARGA [Suspect]
     Active Substance: REGORAFENIB MONOHYDRATE
     Indication: Colon cancer
     Dosage: 80 MG, QD
     Route: 048
     Dates: start: 20250120, end: 20250625
  2. STIVARGA [Suspect]
     Active Substance: REGORAFENIB MONOHYDRATE
     Indication: Targeted cancer therapy
  3. SERPLULIMAB [Suspect]
     Active Substance: SERPLULIMAB
     Indication: Colon cancer
     Route: 041
     Dates: start: 20250513, end: 20250716
  4. SERPLULIMAB [Suspect]
     Active Substance: SERPLULIMAB
     Indication: Targeted cancer therapy

REACTIONS (15)
  - Anal abscess [None]
  - Back pain [Recovering/Resolving]
  - Mouth ulceration [Recovering/Resolving]
  - Skin disorder [Recovering/Resolving]
  - Onychomadesis [Recovering/Resolving]
  - Perineal ulceration [Recovering/Resolving]
  - Pain [Recovering/Resolving]
  - Oropharyngeal pain [None]
  - Skin exfoliation [Recovering/Resolving]
  - Skin weeping [Recovering/Resolving]
  - Erythema [Recovering/Resolving]
  - Perineal erythema [None]
  - Perineal swelling [None]
  - Incorrect dose administered [None]
  - Product prescribing issue [None]

NARRATIVE: CASE EVENT DATE: 20250101
